FAERS Safety Report 6539811-5 (Version None)
Quarter: 2010Q1

REPORT INFORMATION
  Report Type: 
  Country: None (occurrence: None)
  Receive Date: 20100115
  Receipt Date: 20100106
  Transmission Date: 20100710
  Serious: Yes (Death)
  Sender: FDA-Public Use
  Company Number: US-PFIZER INC-2009305070

PATIENT
  Sex: Female

DRUGS (10)
  1. AROMASIN [Suspect]
     Indication: BREAST CANCER
     Dosage: 25 MG, UNK
     Dates: start: 20080701, end: 20091101
  2. ADVAIR DISKUS 100/50 [Concomitant]
     Dosage: 250/51 DF, 2X/DAY
  3. SPIRIVA [Concomitant]
     Dosage: 1 DF, 1X/DAY
     Route: 045
  4. THEOPHYLLINE [Concomitant]
     Dosage: 100 MG, 1X/DAY
  5. XOPENEX [Concomitant]
     Dosage: UNK
  6. DIGOXIN [Concomitant]
     Dosage: 0.125 MG, 1X/DAY
  7. PROTONIX [Concomitant]
     Dosage: 40 MG, 1X/DAY
  8. OXYGEN [Concomitant]
     Dosage: 3 L /MIN
  9. KLOR-CON [Concomitant]
     Dosage: 10 MEQ, 2X/DAY
  10. AMIODARONE [Concomitant]
     Dosage: UNK

REACTIONS (3)
  - CARDIOPULMONARY FAILURE [None]
  - METASTASES TO LARGE INTESTINE [None]
  - METASTASES TO LUNG [None]
